FAERS Safety Report 7251720-5 (Version None)
Quarter: 2011Q1

REPORT INFORMATION
  Report Type: 
  Country: None (occurrence: None)
  Receive Date: 20110128
  Receipt Date: 20110119
  Transmission Date: 20110831
  Serious: Yes (Hospitalization, Other)
  Sender: FDA-Public Use
  Company Number: US-MERCK-0905USA03595

PATIENT
  Age: 65 Year
  Sex: Female
  Weight: 50 kg

DRUGS (2)
  1. FOSAMAX [Suspect]
     Indication: OSTEOPOROSIS
     Route: 048
     Dates: start: 19990301, end: 20010401
  2. FOSAMAX [Suspect]
     Route: 048
     Dates: start: 20010401, end: 20060421

REACTIONS (21)
  - OSTEOMYELITIS [None]
  - BENIGN NEOPLASM [None]
  - CORONARY ARTERY DISEASE [None]
  - RHINITIS ALLERGIC [None]
  - RESTLESS LEGS SYNDROME [None]
  - BRONCHITIS [None]
  - CAROTID ARTERY STENOSIS [None]
  - LIPIDS INCREASED [None]
  - GASTROOESOPHAGEAL REFLUX DISEASE [None]
  - DRUG HYPERSENSITIVITY [None]
  - BREAST MASS [None]
  - GALLBLADDER DISORDER [None]
  - UPPER RESPIRATORY TRACT INFECTION [None]
  - SPINAL COLUMN STENOSIS [None]
  - NECK PAIN [None]
  - FIBROCYSTIC BREAST DISEASE [None]
  - LUNG NEOPLASM [None]
  - OSTEONECROSIS OF JAW [None]
  - HEART RATE INCREASED [None]
  - ORAL TORUS [None]
  - OSTEOARTHRITIS [None]
